FAERS Safety Report 16024423 (Version 1)
Quarter: 2019Q1

REPORT INFORMATION
  Report Type: Spontaneous
  Country: US (occurrence: US)
  Receive Date: 20190301
  Receipt Date: 20190301
  Transmission Date: 20190418
  Serious: Yes (Other)
  Sender: FDA-Public Use
  Company Number: US-FRESENIUS KABI-FK201902258

PATIENT
  Age: 8 Day
  Sex: Male

DRUGS (4)
  1. DOXYCYCLINE FOR INJECTION (MANUFACTURER UNKNOWN) [Suspect]
     Active Substance: DOXYCYCLINE
     Indication: LYMPHANGIOMA
     Dosage: 150MG/KG
     Route: 065
  2. TROMETAMOL [Concomitant]
     Active Substance: TROMETHAMINE
     Indication: LYMPHANGIOMA
     Dosage: UNKNOWN
     Route: 065
  3. SODIUM CALCIUM EDETATE [Concomitant]
     Active Substance: EDETATE CALCIUM DISODIUM
     Indication: LYMPHANGIOMA
     Dosage: UNKNOWN
     Route: 065
  4. DOXYCYCLINE FOR INJECTION (MANUFACTURER UNKNOWN) [Suspect]
     Active Substance: DOXYCYCLINE
     Route: 065

REACTIONS (6)
  - Methaemoglobinaemia [Recovered/Resolved]
  - Hypoglycaemia [Unknown]
  - Product use issue [Unknown]
  - Metabolic acidosis [Unknown]
  - Haemolytic anaemia [Unknown]
  - Product use in unapproved indication [Unknown]
